FAERS Safety Report 5535341-8 (Version None)
Quarter: 2007Q4

REPORT INFORMATION
  Report Type: 
  Country: None (occurrence: None)
  Receive Date: 20071206
  Receipt Date: 20071123
  Transmission Date: 20080405
  Serious: Yes (Other)
  Sender: FDA-Public Use
  Company Number: US-PFIZER INC-2007076515

PATIENT
  Sex: Female
  Weight: 69.9 kg

DRUGS (5)
  1. CHANTIX [Suspect]
     Indication: SMOKING CESSATION THERAPY
     Route: 048
  2. ZANTAC [Concomitant]
     Route: 048
  3. CLIMARA [Concomitant]
  4. XANAX [Concomitant]
  5. FLEXERIL [Concomitant]

REACTIONS (1)
  - HEPATIC ENZYME INCREASED [None]
